FAERS Safety Report 9306885 (Version 1)
Quarter: 2013Q1

REPORT INFORMATION
  Report Type: Spontaneous
  Country: JP (occurrence: None)
  Receive Date: 20130308
  Receipt Date: 20130308
  Transmission Date: 20140127
  Serious: Yes (Hospitalization)
  Sender: FDA-Public Use
  Company Number: SYM-2013-00515

PATIENT
  Age: 56 Year
  Sex: Female

DRUGS (4)
  1. FLUOROURACIL (FLUOROURACIL) [Suspect]
     Indication: OESOPHAGEAL CARCINOMA
     Dates: end: 2011
  2. NEDAPLATIN (NEDAPLATIN) [Suspect]
     Indication: OESOPHAGEAL CARCINOMA
     Dates: start: 2011
  3. THERAPEUTIC RADIOPHARMACEUTICALS (THERAPEUTIC PHARMACEUTICALS) [Suspect]
     Indication: OESOPHAGEAL CARCINOMA
     Dates: start: 2011
  4. TAXOTERE (DOCETAXEL) [Suspect]
     Indication: OESOPHAGEAL CARCINOMA
     Dates: start: 2011

REACTIONS (7)
  - Oesophageal fistula [None]
  - Purulent pericarditis [None]
  - Cardiac tamponade [None]
  - Pericardial effusion [None]
  - Streptococcus test positive [None]
  - Oesophageal stenosis [None]
  - General physical health deterioration [None]
